FAERS Safety Report 23078938 (Version 1)
Quarter: 2023Q4

REPORT INFORMATION
  Report Type: Spontaneous
  Country: JP (occurrence: None)
  Receive Date: 20231018
  Receipt Date: 20231018
  Transmission Date: 20240109
  Serious: Yes (Hospitalization, Other)
  Sender: FDA-Public Use
  Company Number: 2023A233031

PATIENT
  Age: 67 Year
  Sex: Female
  Weight: 35 kg

DRUGS (13)
  1. LOKELMA [Suspect]
     Active Substance: SODIUM ZIRCONIUM CYCLOSILICATE
     Indication: Hyperkalaemia
     Dosage: ON NON-DIALYSIS DAY5.0G UNKNOWN
     Route: 048
     Dates: start: 20221128, end: 20230813
  2. PREDNISOLONE [Suspect]
     Active Substance: PREDNISOLONE
     Dosage: AFTER BREAKFAST
     Route: 048
  3. WARFARIN [Concomitant]
     Active Substance: WARFARIN
     Dosage: AFTER DINNER
     Route: 048
  4. VONOPRAZAN FUMARATE [Concomitant]
     Active Substance: VONOPRAZAN FUMARATE
     Dosage: AFTER BREAKFAST
     Route: 048
  5. AMIODARONE HYDROCHLORIDE [Concomitant]
     Active Substance: AMIODARONE HYDROCHLORIDE
     Dosage: AFTER BREAKFAST
     Route: 048
  6. CELECOXIB [Concomitant]
     Active Substance: CELECOXIB
     Dosage: AFTER BREAKFAST
     Route: 048
  7. ACETAMINOPHEN\TRAMADOL HYDROCHLORIDE [Concomitant]
     Active Substance: ACETAMINOPHEN\TRAMADOL HYDROCHLORIDE
     Dosage: AFTER BREAKFAST
     Route: 048
  8. LOSARTAN POTASSIUM [Concomitant]
     Active Substance: LOSARTAN POTASSIUM
     Dosage: AFTER DINNER
     Route: 048
  9. POLAPREZINC [Concomitant]
     Active Substance: POLAPREZINC
     Dosage: AFTER BREAKFAST AND DINNER
     Route: 048
  10. DROXIDOPA [Concomitant]
     Active Substance: DROXIDOPA
     Dosage: AFTER BREAKFAST (ON DIALYSIS DAY)
     Route: 048
  11. MIYA-BM [Concomitant]
     Active Substance: CLOSTRIDIUM BUTYRICUM SPORES STRAIN M-55
     Dosage: AFTER EACH MEALS
     Route: 048
  12. AMITIZA [Concomitant]
     Active Substance: LUBIPROSTONE
     Dosage: 24.0UG UNKNOWN
     Route: 048
     Dates: end: 20230811
  13. SENNOSIDES [Concomitant]
     Active Substance: SENNOSIDES
     Dosage: 12.0MG UNKNOWN
     Route: 048
     Dates: end: 20230811

REACTIONS (5)
  - Large intestine perforation [Recovered/Resolved]
  - Constipation [Unknown]
  - Enterocolitis [Unknown]
  - Septic shock [Unknown]
  - Haemodynamic instability [Recovering/Resolving]

NARRATIVE: CASE EVENT DATE: 20230101
